FAERS Safety Report 6924282-7 (Version None)
Quarter: 2010Q3

REPORT INFORMATION
  Report Type: 
  Country: None (occurrence: None)
  Receive Date: 20100811
  Receipt Date: 20100811
  Transmission Date: 20110219
  Serious: No
  Sender: FDA-Public Use
  Company Number: None

PATIENT
  Age: 81 Year
  Sex: Male
  Weight: 79 kg

DRUGS (1)
  1. CLINDAMYCIN [Suspect]
     Dosage: 300 MG QID OTHER
     Route: 050
     Dates: start: 20100305, end: 20100315

REACTIONS (1)
  - RASH [None]
